FAERS Safety Report 9293421 (Version 12)
Quarter: 2015Q1

REPORT INFORMATION
  Report Type: Spontaneous
  Country: US (occurrence: US)
  Receive Date: 20130516
  Receipt Date: 20150304
  Transmission Date: 20150721
  Serious: Yes (Hospitalization, Other)
  Sender: FDA-Public Use
  Company Number: US-009507513-1305USA009321

PATIENT
  Sex: Male
  Weight: 88.44 kg

DRUGS (9)
  1. PROSCAR [Suspect]
     Active Substance: FINASTERIDE
     Indication: LOWER URINARY TRACT SYMPTOMS
     Dosage: 5 MG, QD
     Route: 048
     Dates: start: 2007
  2. PROPECIA [Suspect]
     Active Substance: FINASTERIDE
     Indication: PROSTATOMEGALY
  3. FINASTERIDE. [Suspect]
     Active Substance: FINASTERIDE
     Indication: LOWER URINARY TRACT SYMPTOMS
  4. FINASTERIDE. [Suspect]
     Active Substance: FINASTERIDE
     Indication: HYPERTROPHY
  5. PROSCAR [Suspect]
     Active Substance: FINASTERIDE
     Indication: HYPERTROPHY
  6. FINASTERIDE. [Suspect]
     Active Substance: FINASTERIDE
     Indication: PROSTATOMEGALY
     Dosage: 5 MG, QD
     Route: 048
     Dates: start: 20090622
  7. PROPECIA [Suspect]
     Active Substance: FINASTERIDE
     Indication: ALOPECIA
     Dosage: 1 MG, UNK
     Route: 048
     Dates: start: 20030114, end: 200709
  8. PROSCAR [Suspect]
     Active Substance: FINASTERIDE
     Indication: PROPHYLAXIS
  9. FINASTERIDE. [Suspect]
     Active Substance: FINASTERIDE
     Indication: PROPHYLAXIS

REACTIONS (54)
  - Hormone level abnormal [Unknown]
  - Knee operation [Unknown]
  - Weight decreased [Unknown]
  - Brachytherapy to prostate [Unknown]
  - Hypoaesthesia [Unknown]
  - Prostate cancer [Not Recovered/Not Resolved]
  - Hypercholesterolaemia [Unknown]
  - Anxiety [Not Recovered/Not Resolved]
  - Arthroscopic surgery [Unknown]
  - Prostatic dysplasia [Unknown]
  - Wheezing [Unknown]
  - Arthralgia [Unknown]
  - Back pain [Unknown]
  - Prostatic operation [Unknown]
  - Weight decreased [Unknown]
  - Pain [Unknown]
  - Brain injury [Unknown]
  - Essential hypertension [Unknown]
  - Ear pain [Unknown]
  - Cough [Unknown]
  - Dyspnoea [Unknown]
  - Abdominal pain [Unknown]
  - Off label use [Unknown]
  - Ligament rupture [Unknown]
  - Thoracostomy [Unknown]
  - Hyperhidrosis [Unknown]
  - Decreased appetite [Unknown]
  - Biopsy [Unknown]
  - Gastrooesophageal reflux disease [Unknown]
  - Nephrolithiasis [Unknown]
  - Tonsillectomy [Unknown]
  - Decreased appetite [Unknown]
  - Dyspnoea exertional [Unknown]
  - Ejaculation failure [Unknown]
  - Sexual dysfunction [Not Recovered/Not Resolved]
  - Drug ineffective [Unknown]
  - Asthenia [Unknown]
  - Vision blurred [Unknown]
  - Testicular atrophy [Unknown]
  - Headache [Unknown]
  - Lower urinary tract symptoms [Unknown]
  - Loss of libido [Unknown]
  - Type V hyperlipidaemia [Unknown]
  - Penis injury [Unknown]
  - Intervertebral disc degeneration [Unknown]
  - Spinal fracture [Unknown]
  - Prostatitis [Unknown]
  - Seasonal allergy [Unknown]
  - Depression [Not Recovered/Not Resolved]
  - Confusional state [Unknown]
  - Seizure [Unknown]
  - Temperature intolerance [Unknown]
  - Erectile dysfunction [Not Recovered/Not Resolved]
  - Onychomycosis [Unknown]

NARRATIVE: CASE EVENT DATE: 2006
